FAERS Safety Report 9022365 (Version 2)
Quarter: 2013Q1

REPORT INFORMATION
  Report Type: Spontaneous
  Country: JP (occurrence: JP)
  Receive Date: 20130118
  Receipt Date: 20130128
  Transmission Date: 20140127
  Serious: Yes (Hospitalization, Other)
  Sender: FDA-Public Use
  Company Number: JP-ELI_LILLY_AND_COMPANY-JP201301004452

PATIENT
  Age: 61 None
  Sex: Male

DRUGS (6)
  1. CYMBALTA [Suspect]
     Indication: HYPOAESTHESIA
     Dosage: 20 MG, QD
     Route: 048
     Dates: start: 20121122, end: 20121228
  2. SEIBULE [Concomitant]
     Indication: DIABETES MELLITUS
     Dosage: 75 MG, BID
     Route: 048
     Dates: start: 20090206
  3. AMARYL [Concomitant]
     Indication: DIABETES MELLITUS
     Dosage: 3 MG, BID
     Route: 048
     Dates: start: 20090206
  4. GLACTIV [Concomitant]
     Indication: DIABETES MELLITUS
     Dosage: 50 MG, QD
     Route: 048
     Dates: start: 20100628
  5. NU-LOTAN [Concomitant]
     Indication: HYPERTENSION
     Dosage: 50 MG, QD
     Route: 048
     Dates: start: 20120518
  6. METFORMIN HYDROCHLORIDE [Concomitant]
     Indication: DIABETES MELLITUS
     Dosage: 250 MG, BID
     Route: 048
     Dates: start: 20121002

REACTIONS (3)
  - VIIth nerve paralysis [Recovering/Resolving]
  - Hepatic function abnormal [Unknown]
  - Off label use [Recovered/Resolved]
